FAERS Safety Report 6158265-4 (Version None)
Quarter: 2009Q2

REPORT INFORMATION
  Report Type: 
  Country: None (occurrence: None)
  Receive Date: 20090417
  Receipt Date: 20090406
  Transmission Date: 20091009
  Serious: Yes (Hospitalization)
  Sender: FDA-Public Use
  Company Number: IE-PURDUE-GBR_2008_0004700

PATIENT
  Age: 67 Year
  Sex: Female
  Weight: 87 kg

DRUGS (15)
  1. MST CONTINUS TABLETS 5 MG [Suspect]
     Indication: ANALGESIA
     Dosage: 5 MG, BID
     Route: 065
     Dates: start: 20081001
  2. SEVREDOL TABLETS [Suspect]
     Indication: ANALGESIA
     Dosage: 10 MG, PRN
     Route: 065
  3. LYRICA [Concomitant]
     Indication: ANALGESIA
     Route: 065
  4. LANSOPRAZOLE [Concomitant]
     Indication: DRUG USE FOR UNKNOWN INDICATION
     Dosage: 30 MG, NOCTE
     Route: 065
  5. MOVICOL                            /01053601/ [Concomitant]
     Indication: LAXATIVE SUPPORTIVE CARE
     Route: 065
  6. IMODIUM                            /00384302/ [Concomitant]
     Indication: PROPHYLAXIS AGAINST DIARRHOEA
     Dosage: 2 TABLET, PRN
     Route: 065
  7. CIPRAMIL                           /00582602/ [Concomitant]
     Indication: DEPRESSION
     Dosage: 20 MG, NOCTE
     Route: 065
  8. ZOMETA [Concomitant]
     Indication: METASTASES TO BONE
     Dosage: 4 MG, UNK
     Route: 065
  9. CAPECITABINE [Suspect]
     Indication: BREAST CANCER
     Dosage: 2500 UNK, UNK
     Route: 065
     Dates: start: 20081013
  10. CAPECITABINE [Suspect]
     Dosage: 2500 MG, BID
     Route: 065
     Dates: start: 20081012
  11. CAPECITABINE [Suspect]
     Dosage: REDUCED DOSE
     Route: 065
     Dates: start: 20081201
  12. ORAMORPH SR [Suspect]
     Indication: ANALGESIA
     Dosage: 15 MG, PRN
     Route: 065
  13. SERENACE [Concomitant]
     Indication: PROPHYLAXIS OF NAUSEA AND VOMITING
     Dosage: 1.5 MG, NOCTE
     Route: 065
  14. ZIMOVANE [Concomitant]
     Indication: SLEEP DISORDER
     Dosage: 7.5 MG, NOCTE
     Route: 065
  15. MICROLAX                           /00989101/ [Concomitant]
     Indication: LAXATIVE SUPPORTIVE CARE
     Dosage: 2 TABLET, PRN
     Route: 065

REACTIONS (2)
  - GASTROINTESTINAL OBSTRUCTION [None]
  - PAIN [None]
